FAERS Safety Report 6599739-1 (Version None)
Quarter: 2010Q1

REPORT INFORMATION
  Report Type: 
  Country: None (occurrence: None)
  Receive Date: 20100212
  Receipt Date: 20100125
  Transmission Date: 20100710
  Serious: No
  Sender: FDA-Public Use
  Company Number: 2010-00082

PATIENT
  Age: 72 Year
  Sex: Female
  Weight: 63.5036 kg

DRUGS (2)
  1. ZICAM COLD REMEDY ORAL MIST [Suspect]
     Dosage: BID, 3 DAYS
     Dates: start: 20100122, end: 20100124
  2. VICKS DAYQUIL SINUS PRESSURE + PAIN RELIEF W/ IBUPROFEN [Concomitant]

REACTIONS (2)
  - AGEUSIA [None]
  - ANOSMIA [None]
